FAERS Safety Report 14120700 (Version 2)
Quarter: 2018Q1

REPORT INFORMATION
  Report Type: Spontaneous
  Country: US (occurrence: US)
  Receive Date: 20171024
  Receipt Date: 20180129
  Transmission Date: 20180508
  Serious: Yes (Hospitalization, Other)
  Sender: FDA-Public Use
  Company Number: US-PFIZER INC-2017452836

PATIENT
  Age: 43 Year
  Sex: Female
  Weight: 86.18 kg

DRUGS (1)
  1. LYRICA [Suspect]
     Active Substance: PREGABALIN
     Indication: NEUROPATHY PERIPHERAL
     Dosage: 150 MG, 2X/DAY
     Route: 048

REACTIONS (8)
  - Blood glucose increased [Unknown]
  - Cerebrovascular accident [Recovering/Resolving]
  - Arterial occlusive disease [Unknown]
  - Visual impairment [Unknown]
  - Impaired driving ability [Unknown]
  - Balance disorder [Unknown]
  - Cerebrovascular accident [Recovering/Resolving]
  - Dizziness [Unknown]

NARRATIVE: CASE EVENT DATE: 20170810
